FAERS Safety Report 20891755 (Version 1)
Quarter: 2022Q2

REPORT INFORMATION
  Report Type: Report from Study
  Country: EG (occurrence: EG)
  Receive Date: 20220530
  Receipt Date: 20220530
  Transmission Date: 20220721
  Serious: Yes (Other)
  Sender: FDA-Public Use
  Company Number: EG-NOVARTISPH-NVSC2022EG122573

PATIENT
  Age: 49 Year
  Sex: Female

DRUGS (5)
  1. GLIVEC [Suspect]
     Active Substance: IMATINIB MESYLATE
     Indication: Chronic myeloid leukaemia
     Dosage: 400 MG, QD (1 TAB/DAY (AT NIGHT)
     Route: 048
     Dates: start: 202107, end: 202202
  2. HYDROXYCHLOROQUINE SULFATE [Concomitant]
     Active Substance: HYDROXYCHLOROQUINE SULFATE
     Indication: Rheumatoid arthritis
     Dosage: 2 DOSAGE FORM, QD (AT NIGHT AFTER DINNER)
     Route: 048
     Dates: start: 202204, end: 202205
  3. EUROCOX [Concomitant]
     Indication: Inflammation
     Dosage: 1 DOSAGE FORM, QD (AFTER BREAKFAST)
     Route: 065
  4. FLEXILAX [Concomitant]
     Indication: Inflammation
     Dosage: 2 DOSAGE FORM, QD (TAB AFTER BREAKFAST AND 1 TAB AFTER DINNER)
     Route: 065
  5. HEALSEC [Concomitant]
     Indication: Gastric ulcer
     Dosage: 1 DOSAGE FORM, QD (0.5 HOUR BEFORE BREAKFAST)
     Route: 048

REACTIONS (3)
  - Cytogenetic analysis abnormal [Unknown]
  - Visual impairment [Recovering/Resolving]
  - Headache [Recovered/Resolved]

NARRATIVE: CASE EVENT DATE: 20211123
